FAERS Safety Report 19467397 (Version 1)
Quarter: 2021Q2

REPORT INFORMATION
  Report Type: Spontaneous
  Country: US (occurrence: US)
  Receive Date: 20210625
  Receipt Date: 20210625
  Transmission Date: 20210717
  Serious: Yes (Death)
  Sender: FDA-Public Use
  Company Number: None

PATIENT
  Age: 81 Year
  Sex: Female

DRUGS (9)
  1. METFORMIN NORCO [Concomitant]
  2. PREDNISONE. [Concomitant]
     Active Substance: PREDNISONE
  3. QUETIAPINE. [Concomitant]
     Active Substance: QUETIAPINE
  4. TOBRAMYCIN 300MG [Suspect]
     Active Substance: TOBRAMYCIN
     Indication: PSEUDOMONAS INFECTION
     Dosage: ?          OTHER ROUTE:NEBULIZER?
     Dates: start: 202009, end: 202106
  5. METRONIDAZOLE. [Concomitant]
     Active Substance: METRONIDAZOLE
  6. SIMVASTATIN. [Concomitant]
     Active Substance: SIMVASTATIN
  7. MULTAQ [Concomitant]
     Active Substance: DRONEDARONE
  8. PANTOPRAZOLE [Concomitant]
     Active Substance: PANTOPRAZOLE
  9. PREGABALIN. [Concomitant]
     Active Substance: PREGABALIN

REACTIONS (1)
  - Death [None]

NARRATIVE: CASE EVENT DATE: 20210624
